FAERS Safety Report 7702367-5 (Version None)
Quarter: 2011Q3

REPORT INFORMATION
  Report Type: 
  Country: None (occurrence: None)
  Receive Date: 20110822
  Receipt Date: 20110809
  Transmission Date: 20111222
  Serious: Yes (Death, Other)
  Sender: FDA-Public Use
  Company Number: JP-AMGEN-JPNCT2011042526

PATIENT
  Age: 61 Year
  Sex: Male
  Weight: 45 kg

DRUGS (21)
  1. PANITUMUMAB [Suspect]
     Dosage: 5.7 MG/KG, Q2WK
     Route: 041
     Dates: start: 20101221, end: 20101221
  2. PANITUMUMAB [Suspect]
     Dosage: 6 MG/KG, Q2WK
     Route: 041
     Dates: start: 20110104, end: 20110302
  3. ANTIHISTAMINES [Concomitant]
     Indication: PROPHYLAXIS
     Dosage: UNK
     Route: 065
  4. LYRICA [Concomitant]
     Dosage: UNK
     Route: 048
  5. CORTICOSTEROIDS [Concomitant]
     Indication: PROPHYLAXIS
     Dosage: UNK
     Route: 065
  6. LEUCOVORIN CALCIUM [Concomitant]
     Indication: COLORECTAL CANCER
     Route: 041
     Dates: start: 20100913, end: 20100927
  7. PANITUMUMAB [Suspect]
     Dosage: 6 MG/KG, Q2WK
     Route: 041
     Dates: start: 20110330, end: 20110413
  8. ACETAMINOPHEN [Concomitant]
     Route: 048
  9. PANITUMUMAB [Suspect]
     Dosage: 4.8 MG/KG, Q2WK
     Route: 041
     Dates: start: 20101122, end: 20101207
  10. CELECOXIB [Concomitant]
     Dosage: UNK
     Route: 048
  11. FLUOROURACIL [Suspect]
     Indication: COLORECTAL CANCER
     Route: 041
     Dates: start: 20100913, end: 20100927
  12. LEUCOVORIN CALCIUM [Concomitant]
     Route: 041
     Dates: start: 20110202, end: 20110413
  13. RABEPRAZOLE SODIUM [Concomitant]
     Dosage: UNK
     Route: 048
  14. TOPOTECAN [Suspect]
     Indication: COLORECTAL CANCER
     Route: 041
     Dates: start: 20110202, end: 20110413
  15. SEROQUEL [Concomitant]
     Dosage: UNK
     Route: 048
  16. FLUOROURACIL [Suspect]
     Route: 041
     Dates: start: 20101013, end: 20110118
  17. OXALIPLATIN [Concomitant]
     Indication: COLORECTAL CANCER
     Route: 041
     Dates: start: 20100913, end: 20100927
  18. LEUCOVORIN CALCIUM [Concomitant]
     Route: 041
     Dates: start: 20101013, end: 20110118
  19. PANITUMUMAB [Suspect]
     Indication: COLORECTAL CANCER
     Dosage: 6 MG/KG, Q2WK
     Route: 041
     Dates: start: 20100913, end: 20101026
  20. FLUOROURACIL [Suspect]
     Route: 040
     Dates: start: 20110202, end: 20110413
  21. FENTANYL [Concomitant]
     Dosage: UNK
     Route: 062

REACTIONS (4)
  - COLORECTAL CANCER [None]
  - WHITE BLOOD CELL COUNT DECREASED [None]
  - HYPERKALAEMIA [None]
  - DERMATITIS ACNEIFORM [None]
